FAERS Safety Report 10230014 (Version 2)
Quarter: 2014Q2

REPORT INFORMATION
  Report Type: Report from Study
  Country: BR (occurrence: BR)
  Receive Date: 20140611
  Receipt Date: 20140616
  Transmission Date: 20141212
  Serious: Yes (Disabling, Other)
  Sender: FDA-Public Use
  Company Number: BR-ABBVIE-14P-020-1243832-00

PATIENT
  Age: 42 Year
  Sex: Female
  Weight: 76 kg

DRUGS (12)
  1. HUMIRA [Suspect]
     Indication: RHEUMATOID ARTHRITIS
     Route: 058
     Dates: start: 20131113
  2. OMEPRAZOLE [Concomitant]
     Indication: GASTRIC DISORDER
     Route: 048
     Dates: start: 20130501
  3. OMEPRAZOLE [Concomitant]
     Indication: PROPHYLAXIS
  4. MELOXICAM [Concomitant]
     Indication: ANTIINFLAMMATORY THERAPY
     Route: 048
  5. NIMESULIDE [Concomitant]
     Indication: ANTIINFLAMMATORY THERAPY
     Route: 048
     Dates: start: 20131105, end: 20140405
  6. FOLIC ACID [Concomitant]
     Indication: BONE DEFORMITY
     Route: 048
     Dates: start: 20130501
  7. FOLIC ACID [Concomitant]
     Indication: PROPHYLAXIS
  8. XEFO [Concomitant]
     Indication: ANTIINFLAMMATORY THERAPY
     Route: 048
     Dates: start: 20130505, end: 20131105
  9. REUQUINOL [Concomitant]
     Indication: RHEUMATIC DISORDER
     Route: 048
     Dates: start: 20130501
  10. METHOTREXATE [Concomitant]
     Indication: BONE DEFORMITY
     Dosage: EVERY FRIDAY
     Route: 048
     Dates: start: 20130501
  11. METHOTREXATE [Concomitant]
     Indication: PROPHYLAXIS
  12. INSULIN [Concomitant]
     Indication: DIABETES MELLITUS
     Route: 058
     Dates: start: 20111001

REACTIONS (13)
  - Movement disorder [Recovering/Resolving]
  - Insomnia [Recovering/Resolving]
  - Pain [Recovering/Resolving]
  - Peripheral swelling [Recovered/Resolved]
  - Joint swelling [Recovered/Resolved]
  - Peripheral swelling [Not Recovered/Not Resolved]
  - Joint swelling [Recovered/Resolved]
  - Fluid retention [Recovered/Resolved]
  - Renal impairment [Recovered/Resolved]
  - Depression [Recovering/Resolving]
  - Drug ineffective [Unknown]
  - Pain [Unknown]
  - Arthralgia [Unknown]
